FAERS Safety Report 5388779-6 (Version None)
Quarter: 2007Q3

REPORT INFORMATION
  Report Type: 
  Country: None (occurrence: None)
  Receive Date: 20070712
  Receipt Date: 20070501
  Transmission Date: 20080115
  Serious: Yes (Hospitalization)
  Sender: FDA-Public Use
  Company Number: 072

PATIENT
  Age: 68 Year
  Sex: Male

DRUGS (1)
  1. WARFARIN (TABLET) [Suspect]
     Indication: ATRIAL FIBRILLATION

REACTIONS (19)
  - BRAIN OEDEMA [None]
  - CEREBRAL ATROPHY [None]
  - CEREBRAL ISCHAEMIA [None]
  - CHRONIC OBSTRUCTIVE PULMONARY DISEASE [None]
  - CONDITION AGGRAVATED [None]
  - CONTUSION [None]
  - DYSARTHRIA [None]
  - FALL [None]
  - FUNGAEMIA [None]
  - HAEMATOMA [None]
  - HEAD INJURY [None]
  - INTERNATIONAL NORMALISED RATIO DECREASED [None]
  - INTERNATIONAL NORMALISED RATIO INCREASED [None]
  - PNEUMONIA [None]
  - QUADRIPLEGIA [None]
  - RESPIRATORY DISORDER [None]
  - SPINAL CORD HAEMORRHAGE [None]
  - SPINAL CORD OEDEMA [None]
  - SYSTEMIC MYCOSIS [None]
